FAERS Safety Report 18790887 (Version 1)
Quarter: 2021Q1

REPORT INFORMATION
  Report Type: Spontaneous
  Country: US (occurrence: US)
  Receive Date: 20210126
  Receipt Date: 20210126
  Transmission Date: 20210419
  Serious: No
  Sender: FDA-Public Use
  Company Number: US-ELI_LILLY_AND_COMPANY-US202101009833

PATIENT
  Age: 81 Year
  Sex: Male

DRUGS (3)
  1. INSULIN  LISPRO [Suspect]
     Active Substance: INSULIN LISPRO
     Dosage: UNK UNK, PRN
     Route: 065
  2. LANTUS [Concomitant]
     Active Substance: INSULIN GLARGINE
     Indication: PRODUCT USED FOR UNKNOWN INDICATION
     Dosage: 11 U, BID
  3. INSULIN  LISPRO [Suspect]
     Active Substance: INSULIN LISPRO
     Indication: PRODUCT USED FOR UNKNOWN INDICATION
     Dosage: 12 U, OTHER (WITH EACH MEAL)
     Route: 065

REACTIONS (2)
  - Underdose [Unknown]
  - Hypoacusis [Unknown]

NARRATIVE: CASE EVENT DATE: 2011
